FAERS Safety Report 12116775 (Version 2)
Quarter: 2016Q1

REPORT INFORMATION
  Report Type: Report from Study
  Country: PL (occurrence: PL)
  Receive Date: 20160225
  Receipt Date: 20160307
  Transmission Date: 20160526
  Serious: Yes (Hospitalization)
  Sender: FDA-Public Use
  Company Number: PL-GILEAD-2016-0199707

PATIENT
  Sex: Male
  Weight: 90.3 kg

DRUGS (24)
  1. CLEMASTIN [Concomitant]
     Active Substance: CLEMASTINE
     Route: 048
     Dates: start: 20160129
  2. PARACETAMOL [Concomitant]
     Active Substance: ACETAMINOPHEN
     Route: 042
     Dates: start: 20151229
  3. HYDROCORTISONE                     /00028602/ [Concomitant]
     Active Substance: HYDROCORTISONE
     Indication: RASH
     Dosage: UNK
     Route: 061
     Dates: start: 20160129
  4. ESPUMISAN                          /06269601/ [Concomitant]
     Dosage: UNK
     Route: 048
     Dates: end: 20160202
  5. OBINUTUZUMAB [Suspect]
     Active Substance: OBINUTUZUMAB
     Indication: CHRONIC LYMPHOCYTIC LEUKAEMIA
     Dosage: 1000 MG, CYCLICAL
     Route: 042
     Dates: start: 20151229, end: 20151230
  6. OBINUTUZUMAB [Suspect]
     Active Substance: OBINUTUZUMAB
     Dosage: 1000 MG, CYCLICAL
     Route: 042
     Dates: start: 20160115, end: 20160115
  7. HEPA-MERZ                          /01390204/ [Concomitant]
     Indication: HEPATOTOXICITY
     Dosage: UNK
     Route: 048
     Dates: start: 20160129
  8. HEVIRAN                            /00587301/ [Concomitant]
     Indication: RASH
     Dosage: UNK
     Route: 048
     Dates: start: 20151230
  9. OBINUTUZUMAB [Suspect]
     Active Substance: OBINUTUZUMAB
     Dosage: 1000 MG, CYCLICAL
     Route: 042
     Dates: start: 20160105, end: 20160105
  10. IDELALISIB [Suspect]
     Active Substance: IDELALISIB
     Indication: CHRONIC LYMPHOCYTIC LEUKAEMIA
     Dosage: 150 MG, BID
     Route: 048
     Dates: start: 20151229, end: 20160116
  11. MILURIT [Concomitant]
     Active Substance: ALLOPURINOL
     Indication: RASH
     Dosage: UNK
     Route: 048
     Dates: start: 20151230
  12. CONCOR [Concomitant]
     Active Substance: BISOPROLOL FUMARATE
     Route: 048
     Dates: start: 201510, end: 20160202
  13. DEXAVEN [Concomitant]
     Active Substance: DEXAMETHASONE
     Route: 042
     Dates: start: 20151229
  14. POLPRIL [Concomitant]
     Active Substance: RAMIPRIL
     Indication: RASH
  15. CONTROLOC                          /01263204/ [Concomitant]
     Indication: GASTROOESOPHAGEAL REFLUX DISEASE
     Dosage: UNK
     Route: 048
     Dates: end: 20160202
  16. CONCOR [Concomitant]
     Active Substance: BISOPROLOL FUMARATE
     Indication: HYPERTENSION
     Route: 048
     Dates: start: 201510
  17. POLPRIL [Concomitant]
     Active Substance: RAMIPRIL
     Indication: HYPERTENSION
     Route: 048
     Dates: start: 201510
  18. ACARD [Concomitant]
     Active Substance: ASPIRIN
     Indication: ANGINA PECTORIS
     Route: 048
     Dates: start: 2013
  19. ACARD [Concomitant]
     Active Substance: ASPIRIN
     Route: 048
     Dates: start: 2013, end: 20160202
  20. OBINUTUZUMAB [Suspect]
     Active Substance: OBINUTUZUMAB
     Dosage: UNK
     Route: 042
  21. CLEMASTIN [Concomitant]
     Active Substance: CLEMASTINE
     Indication: RASH
     Route: 042
     Dates: start: 20151229
  22. ATORIS [Concomitant]
     Active Substance: ATORVASTATIN CALCIUM
     Indication: HYPERCHOLESTEROLAEMIA
     Dosage: UNK
     Route: 048
     Dates: start: 201511, end: 20160202
  23. IMIGRAN                            /01044801/ [Concomitant]
     Active Substance: SUMATRIPTAN
     Indication: MIGRAINE
     Dosage: UNK
     Route: 048
     Dates: start: 2010, end: 20160202
  24. PROSTAMOL UNO [Concomitant]
     Indication: BENIGN PROSTATIC HYPERPLASIA
     Dosage: UNK
     Route: 048
     Dates: end: 20160202

REACTIONS (1)
  - Rash [Recovering/Resolving]

NARRATIVE: CASE EVENT DATE: 20160202
